FAERS Safety Report 14774208 (Version 1)
Quarter: 2018Q2

REPORT INFORMATION
  Report Type: Spontaneous
  Country: FR (occurrence: FR)
  Receive Date: 20180418
  Receipt Date: 20180418
  Transmission Date: 20180711
  Serious: Yes (Other)
  Sender: FDA-Public Use
  Company Number: FR-MERCK KGAA-2045940

PATIENT
  Age: 49 Year
  Sex: Female

DRUGS (1)
  1. NOVOTHYROX [Suspect]
     Active Substance: LEVOTHYROXINE SODIUM
     Indication: PRODUCT USED FOR UNKNOWN INDICATION
     Dates: start: 201703

REACTIONS (18)
  - Musculoskeletal stiffness [None]
  - Nervousness [None]
  - Stress [None]
  - Joint effusion [None]
  - Asthenia [None]
  - General physical health deterioration [None]
  - Joint swelling [None]
  - Gait disturbance [None]
  - Fear of falling [None]
  - Impaired driving ability [None]
  - Blood thyroid stimulating hormone increased [None]
  - Muscle spasms [None]
  - Vertigo [None]
  - Back pain [None]
  - Movement disorder [None]
  - Diarrhoea [None]
  - Fatigue [None]
  - Pain in extremity [None]

NARRATIVE: CASE EVENT DATE: 2017
